FAERS Safety Report 4587655-6 (Version None)
Quarter: 2005Q1

REPORT INFORMATION
  Report Type: 
  Country: None (occurrence: None)
  Receive Date: 20050215
  Receipt Date: 20050203
  Transmission Date: 20050727
  Serious: Yes (Death, Hospitalization, Other)
  Sender: FDA-Public Use
  Company Number: A-CH2004-07144

PATIENT
  Age: 55 Year
  Sex: Female

DRUGS (8)
  1. TRACLEER [Suspect]
     Indication: PULMONARY HYPERTENSION
     Dosage: 62.5 MG, BID, ORAL; 125 MG, BID, ORAL
     Route: 048
     Dates: start: 20040310, end: 20040401
  2. TRACLEER [Suspect]
     Indication: PULMONARY HYPERTENSION
     Dosage: 62.5 MG, BID, ORAL; 125 MG, BID, ORAL
     Route: 048
     Dates: start: 20040401, end: 20040512
  3. LEVOTHYROXINE SODIUM [Concomitant]
  4. SORTIS   GOEDECKE  (ATORVASTATIN CALCIUM) [Concomitant]
  5. LOPRIN  BRISTOL-MYERS SQUIBB   (CAPTOPRIL) [Concomitant]
  6. DILZEM   ELAN  (DILTIAZEM HYDROCHLORIDE) [Concomitant]
  7. MARCUMAR [Concomitant]
  8. NITRO-SPRAY (ISOSORBIDE DINITRATE) [Concomitant]

REACTIONS (6)
  - ALANINE AMINOTRANSFERASE INCREASED [None]
  - ASPARTATE AMINOTRANSFERASE INCREASED [None]
  - BLOOD BILIRUBIN INCREASED [None]
  - CONDITION AGGRAVATED [None]
  - RIGHT VENTRICULAR FAILURE [None]
  - SINUS TACHYCARDIA [None]
